FAERS Safety Report 6297665-9 (Version None)
Quarter: 2009Q3

REPORT INFORMATION
  Report Type: 
  Country: None (occurrence: None)
  Receive Date: 20090805
  Receipt Date: 20090730
  Transmission Date: 20100115
  Serious: Yes (Other)
  Sender: FDA-Public Use
  Company Number: GB-AMGEN-US358538

PATIENT
  Age: 45 Year
  Sex: Male
  Weight: 49 kg

DRUGS (4)
  1. ENBREL [Suspect]
     Indication: RHEUMATOID ARTHRITIS
     Dosage: 25MG (FREQUENCY UNSPECIFIED)
     Route: 058
     Dates: start: 20090601, end: 20090707
  2. PREDNISOLONE [Concomitant]
     Indication: RHEUMATOID ARTHRITIS
     Dosage: 10MG (FREQUENCY UNSPECIFIED)
     Route: 048
     Dates: start: 20081009
  3. SULFASALAZINE [Concomitant]
     Indication: RHEUMATOID ARTHRITIS
     Dosage: 1G (FREQUENCY UNSPECIFIED)
     Route: 048
     Dates: start: 20070101, end: 20090430
  4. METHOTREXATE [Concomitant]
     Indication: RHEUMATOID ARTHRITIS
     Dosage: 20MG (FREQUENCY UNSPECIFIED)
     Route: 048
     Dates: start: 20070101, end: 20090712

REACTIONS (1)
  - PULMONARY TUBERCULOSIS [None]
